FAERS Safety Report 9864188 (Version 1)
Quarter: 2014Q1

REPORT INFORMATION
  Report Type: Spontaneous
  Country: US (occurrence: US)
  Receive Date: 20140203
  Receipt Date: 20140203
  Transmission Date: 20141002
  Serious: No
  Sender: FDA-Public Use
  Company Number: US-AMGEN-USASP2014001045

PATIENT
  Age: 52 Year
  Sex: Female

DRUGS (2)
  1. ENBREL [Suspect]
     Indication: RHEUMATOID ARTHRITIS
     Dosage: UNK UNK, QWK
     Route: 065
     Dates: start: 20060101, end: 201111
  2. METHOTREXATE [Concomitant]
     Dosage: 20 MG, QWK
     Dates: start: 2001

REACTIONS (4)
  - Menopause [Recovered/Resolved]
  - Weight increased [Unknown]
  - Pharyngitis [Recovered/Resolved]
  - Sinusitis [Recovered/Resolved]
